FAERS Safety Report 17670711 (Version 1)
Quarter: 2020Q2

REPORT INFORMATION
  Report Type: Spontaneous
  Country: US (occurrence: US)
  Receive Date: 20200415
  Receipt Date: 20200415
  Transmission Date: 20200713
  Serious: Yes (Death)
  Sender: FDA-Public Use
  Company Number: None

PATIENT
  Age: 76 Year
  Sex: Male
  Weight: 64.86 kg

DRUGS (1)
  1. CILOSTAZOL. [Suspect]
     Active Substance: CILOSTAZOL
     Indication: INTERMITTENT CLAUDICATION
     Route: 048
     Dates: start: 20191012

REACTIONS (8)
  - Syncope [None]
  - Head injury [None]
  - Decerebrate posture [None]
  - Anaemia [None]
  - Fall [None]
  - Coma [None]
  - Dizziness postural [None]
  - Traumatic intracranial haemorrhage [None]

NARRATIVE: CASE EVENT DATE: 20191124
